FAERS Safety Report 12411185 (Version 1)
Quarter: 2016Q2

REPORT INFORMATION
  Report Type: Spontaneous
  Country: IT (occurrence: IT)
  Receive Date: 20160527
  Receipt Date: 20160527
  Transmission Date: 20160815
  Serious: Yes (Hospitalization)
  Sender: FDA-Public Use
  Company Number: IT-BAYER-2016-100624

PATIENT
  Age: 87 Year
  Sex: Male

DRUGS (12)
  1. FOSTER [Concomitant]
     Active Substance: BECLOMETHASONE\FORMOTEROL
     Route: 055
  2. LASIX [Concomitant]
     Active Substance: FUROSEMIDE
     Route: 048
  3. LANSOX [Concomitant]
     Active Substance: LANSOPRAZOLE
     Route: 048
  4. FELISON [Concomitant]
     Active Substance: FLURAZEPAM MONOHYDROCHLORIDE
     Route: 048
  5. TAVOR [LORAZEPAM] [Concomitant]
     Active Substance: LORAZEPAM
     Route: 048
  6. CONGESCOR [Concomitant]
     Active Substance: BISOPROLOL
     Route: 048
  7. ZYPREXA [Concomitant]
     Active Substance: OLANZAPINE
     Route: 048
  8. CARDIOASPIRIN [Suspect]
     Active Substance: ASPIRIN
     Route: 048
  9. KANRENOL [Concomitant]
     Active Substance: CANRENOATE POTASSIUM
     Route: 048
  10. BRILIQUE [Suspect]
     Active Substance: TICAGRELOR
     Route: 048
  11. TOTALIP [Concomitant]
     Active Substance: ATORVASTATIN
     Route: 048
  12. PAROXETIN ACTAVIS [Concomitant]
     Route: 048

REACTIONS (2)
  - Auricular haematoma [Unknown]
  - Injury [Unknown]

NARRATIVE: CASE EVENT DATE: 20160319
